FAERS Safety Report 5132795-6 (Version None)
Quarter: 2006Q4

REPORT INFORMATION
  Report Type: 
  Country: None (occurrence: None)
  Receive Date: 20061023
  Receipt Date: 20060908
  Transmission Date: 20070319
  Serious: Yes (Disabling)
  Sender: FDA-Public Use
  Company Number: JP-MERCK-0609USA02935

PATIENT
  Age: 68 Year
  Sex: Male
  Weight: 71 kg

DRUGS (6)
  1. ZOCOR [Suspect]
     Indication: HYPERLIPIDAEMIA
     Route: 048
     Dates: start: 20020301, end: 20060816
  2. ZOCOR [Suspect]
     Route: 048
     Dates: start: 20060820, end: 20060821
  3. ZOCOR [Suspect]
     Indication: HYPERCHOLESTEROLAEMIA
     Route: 048
     Dates: start: 20020301, end: 20060816
  4. ZOCOR [Suspect]
     Route: 048
     Dates: start: 20060820, end: 20060821
  5. CANDESARTAN CILEXETIL [Concomitant]
     Indication: CHEMOTHERAPY
     Route: 048
     Dates: start: 20050201
  6. LEUPROLIDE ACETATE [Concomitant]
     Indication: CHEMOTHERAPY
     Route: 051
     Dates: start: 20040301

REACTIONS (1)
  - PAIN IN EXTREMITY [None]
